FAERS Safety Report 17637493 (Version 1)
Quarter: 2020Q2

REPORT INFORMATION
  Report Type: Spontaneous
  Country: US (occurrence: US)
  Receive Date: 20200407
  Receipt Date: 20200407
  Transmission Date: 20200713
  Serious: Yes (Hospitalization)
  Sender: FDA-Public Use
  Company Number: None

PATIENT
  Sex: Male
  Weight: 99.7 kg

DRUGS (2)
  1. BENDAMUSTINE HYDROCHLORIDE. [Suspect]
     Active Substance: BENDAMUSTINE HYDROCHLORIDE
     Dates: start: 20200326
  2. RITUXIMAB. [Suspect]
     Active Substance: RITUXIMAB
     Dates: start: 20200326

REACTIONS (3)
  - Hypersensitivity [None]
  - Febrile neutropenia [None]
  - Productive cough [None]

NARRATIVE: CASE EVENT DATE: 20200327
